FAERS Safety Report 6698492-0 (Version None)
Quarter: 2010Q2

REPORT INFORMATION
  Report Type: 
  Country: None (occurrence: None)
  Receive Date: 20100427
  Receipt Date: 20100422
  Transmission Date: 20101027
  Serious: Yes (Hospitalization)
  Sender: FDA-Public Use
  Company Number: FR-ROCHE-698884

PATIENT
  Sex: Female

DRUGS (4)
  1. VALIUM [Suspect]
     Indication: PREMEDICATION
     Route: 065
     Dates: start: 20091216, end: 20091216
  2. MIDAZOLAM HCL [Suspect]
     Route: 065
     Dates: start: 20091216, end: 20091216
  3. ATARAX [Suspect]
     Route: 065
     Dates: start: 20091216, end: 20091216
  4. RAPIFEN [Suspect]
     Route: 065
     Dates: start: 20091216, end: 20091216

REACTIONS (1)
  - ANAPHYLACTOID REACTION [None]
